FAERS Safety Report 15728123 (Version 1)
Quarter: 2018Q4

REPORT INFORMATION
  Report Type: Other
  Country: ES (occurrence: ES)
  Receive Date: 20181217
  Receipt Date: 20181217
  Transmission Date: 20190205
  Serious: Yes (Death, Hospitalization)
  Sender: FDA-Public Use
  Company Number: ES-ACTELION-A-CH2018-183175

PATIENT

DRUGS (2)
  1. EPOPROSTENOL SODIUM. [Suspect]
     Active Substance: EPOPROSTENOL SODIUM
     Indication: THROMBOSIS PROPHYLAXIS
     Dosage: 5 UNK, UNK
     Route: 042
  2. HEPARIN [Concomitant]
     Active Substance: HEPARIN SODIUM
     Indication: THROMBOSIS PROPHYLAXIS
     Dosage: 4 UNK, UNK
     Route: 042

REACTIONS (4)
  - Liver transplant [Unknown]
  - Platelet count decreased [Unknown]
  - Thrombosis [Unknown]
  - Death [Fatal]
